FAERS Safety Report 9546534 (Version 2)
Quarter: 2013Q4

REPORT INFORMATION
  Report Type: Spontaneous
  Country: BE (occurrence: BE)
  Receive Date: 20130923
  Receipt Date: 20131003
  Transmission Date: 20140711
  Serious: Yes (Death)
  Sender: FDA-Public Use
  Company Number: BE-ROCHE-1278341

PATIENT
  Age: 73 Year
  Sex: Male
  Weight: 80 kg

DRUGS (1)
  1. ROACTEMRA [Suspect]
     Indication: RHEUMATOID ARTHRITIS
     Dosage: LAST INFUSION OF TOCILIZUMAB WAS ON 04/JUL/2013
     Route: 042
     Dates: start: 20091029, end: 20130704

REACTIONS (4)
  - Infection [Fatal]
  - Endocarditis [Fatal]
  - Renal failure [Fatal]
  - Bradycardia [Fatal]
